FAERS Safety Report 7937296-5 (Version None)
Quarter: 2011Q4

REPORT INFORMATION
  Report Type: 
  Country: None (occurrence: None)
  Receive Date: 20111123
  Receipt Date: 20111115
  Transmission Date: 20120403
  Serious: Yes (Death, Hospitalization)
  Sender: FDA-Public Use
  Company Number: US-BAXTER-2011BH035152

PATIENT
  Sex: Female

DRUGS (1)
  1. DIANEAL [Suspect]
     Indication: PERITONEAL DIALYSIS
     Route: 033
     Dates: start: 20000101, end: 20111001

REACTIONS (3)
  - FUNGAL INFECTION [None]
  - PERITONEAL DIALYSIS COMPLICATION [None]
  - FUNGAL PERITONITIS [None]
